FAERS Safety Report 19083176 (Version 1)
Quarter: 2021Q2

REPORT INFORMATION
  Report Type: Spontaneous
  Country: CN (occurrence: CN)
  Receive Date: 20210401
  Receipt Date: 20210401
  Transmission Date: 20210717
  Serious: Yes (Other)
  Sender: FDA-Public Use
  Company Number: CN-PFIZER INC-2021326187

PATIENT
  Age: 52 Year
  Sex: Female

DRUGS (2)
  1. CYTARABINE. [Suspect]
     Active Substance: CYTARABINE
     Indication: ACUTE LYMPHOCYTIC LEUKAEMIA
     Dosage: 4.47 G, 2X/DAY (EVERY 12 H)
     Route: 041
     Dates: start: 20210306, end: 20210308
  2. METHOTREXATE. [Suspect]
     Active Substance: METHOTREXATE
     Indication: ACUTE LYMPHOCYTIC LEUKAEMIA
     Dosage: 1490 MG, 1X/DAY (298MG FOR 2 HOURS, 1192MG FOR 22 HOURS)
     Route: 041
     Dates: start: 20210305, end: 20210306

REACTIONS (8)
  - Myelosuppression [Not Recovered/Not Resolved]
  - Pruritus [Unknown]
  - Discomfort [Unknown]
  - Petechiae [Recovering/Resolving]
  - Pneumonia [Unknown]
  - Anaemia [Unknown]
  - Pyrexia [Unknown]
  - Granulocytopenia [Unknown]

NARRATIVE: CASE EVENT DATE: 202103
